FAERS Safety Report 4496684-2 (Version None)
Quarter: 2004Q4

REPORT INFORMATION
  Report Type: 
  Country: None (occurrence: None)
  Receive Date: 20041108
  Receipt Date: 20041108
  Transmission Date: 20050328
  Serious: Yes (Other)
  Sender: FDA-Public Use
  Company Number: None

PATIENT
  Age: 44 Year
  Sex: Female
  Weight: 68.0396 kg

DRUGS (12)
  1. OXYCONTIN [Suspect]
     Indication: LUMBAR RADICULOPATHY
     Dosage: 1 PO TID
     Route: 048
  2. OXYCONTIN [Suspect]
     Indication: SPONDYLOSIS
     Dosage: 1 PO TID
     Route: 048
  3. NORTRIPTYLINE HCL [Concomitant]
  4. PERCOCET [Concomitant]
  5. NEURONTIN [Concomitant]
  6. ATENOLOL [Concomitant]
  7. THEOPHYLLINE [Concomitant]
  8. ATROVENT [Concomitant]
  9. PROVENTIL [Concomitant]
  10. METFORMIN [Concomitant]
  11. GLYBURIDE [Concomitant]
  12. ASPIRIN [Concomitant]

REACTIONS (4)
  - BLOOD GLUCOSE FLUCTUATION [None]
  - DEHYDRATION [None]
  - NAUSEA [None]
  - VOMITING [None]
